FAERS Safety Report 4720493-X (Version None)
Quarter: 2005Q3

REPORT INFORMATION
  Report Type: 
  Country: None (occurrence: None)
  Receive Date: 20050721
  Receipt Date: 20041129
  Transmission Date: 20060218
  Serious: No
  Sender: FDA-Public Use
  Company Number: US-BRISTOL-MYERS SQUIBB COMPANY-12777850

PATIENT
  Age: 64 Year
  Sex: Female
  Weight: 92 kg

DRUGS (4)
  1. GLUCOVANCE [Suspect]
     Indication: DIABETES MELLITUS
     Dosage: DOSE = 5/500 MG BID
     Route: 048
     Dates: start: 20041124
  2. HUMULIN R [Concomitant]
  3. ASPIRIN [Concomitant]
  4. BENICAR [Concomitant]
     Dosage: DOSE = 40/12.5 MG DAILY
     Dates: start: 20041124

REACTIONS (3)
  - ABDOMINAL PAIN UPPER [None]
  - DIARRHOEA [None]
  - NAUSEA [None]
